FAERS Safety Report 7746202-8 (Version None)
Quarter: 2011Q3

REPORT INFORMATION
  Report Type: 
  Country: None (occurrence: None)
  Receive Date: 20110913
  Receipt Date: 20110906
  Transmission Date: 20111222
  Serious: Yes (Other)
  Sender: FDA-Public Use
  Company Number: US-ROCHE-801576

PATIENT
  Sex: Female

DRUGS (2)
  1. RIBAVIRIN [Suspect]
     Indication: HEPATITIS C
     Dosage: TEMPORARILY STOPPED
     Route: 065
     Dates: start: 20100923, end: 20110404
  2. PEGINTERFERON ALFA-2A [Suspect]
     Indication: HEPATITIS C
     Dosage: TEMPORARILY STOPPED
     Route: 065
     Dates: start: 20100923, end: 20110404

REACTIONS (5)
  - FLUID RETENTION [None]
  - THYROID DISORDER [None]
  - MENTAL IMPAIRMENT [None]
  - HAEMOGLOBIN DECREASED [None]
  - WEIGHT DECREASED [None]
